FAERS Safety Report 8546681-2 (Version None)
Quarter: 2012Q3

REPORT INFORMATION
  Report Type: 
  Country: None (occurrence: None)
  Receive Date: 20120727
  Receipt Date: 20120202
  Transmission Date: 20120928
  Serious: No
  Sender: FDA-Public Use
  Company Number: US-ASTRAZENECA-2012SE05414

PATIENT
  Age: 54 Year
  Sex: Male
  Weight: 74.8 kg

DRUGS (11)
  1. SEROQUEL XR [Suspect]
     Indication: BIPOLAR DISORDER
     Route: 048
  2. SEROQUEL XR [Suspect]
     Indication: MENTAL DISORDER
     Route: 048
  3. SEROQUEL XR [Suspect]
     Route: 048
  4. CITALOPRAM HYDROBROMIDE [Concomitant]
  5. TRAZODONE HYDROCHLORIDE [Concomitant]
  6. SEROQUEL XR [Suspect]
     Route: 048
  7. HYDROXYZINE [Concomitant]
  8. AMOXICILLIN [Concomitant]
  9. SEROQUEL XR [Suspect]
     Route: 048
  10. SEROQUEL XR [Suspect]
     Indication: DEPRESSION
     Route: 048
  11. ALPRAZOLAM [Concomitant]

REACTIONS (12)
  - PHOTOSENSITIVITY REACTION [None]
  - ACTIVITIES OF DAILY LIVING IMPAIRED [None]
  - NERVOUSNESS [None]
  - PARAESTHESIA [None]
  - FEELING ABNORMAL [None]
  - DEPERSONALISATION [None]
  - RASH [None]
  - AMNESIA [None]
  - PSYCHOMOTOR HYPERACTIVITY [None]
  - INCORRECT DOSE ADMINISTERED [None]
  - DRUG DOSE OMISSION [None]
  - TREMOR [None]
